FAERS Safety Report 11336880 (Version 3)
Quarter: 2015Q3

REPORT INFORMATION
  Report Type: Spontaneous
  Country: US (occurrence: US)
  Receive Date: 20150804
  Receipt Date: 20150916
  Transmission Date: 20151125
  Serious: No
  Sender: FDA-Public Use
  Company Number: US-PFIZER INC-2015259386

PATIENT
  Age: 65 Year
  Sex: Male
  Weight: 127 kg

DRUGS (16)
  1. LYRICA [Suspect]
     Active Substance: PREGABALIN
     Indication: SPINAL COLUMN STENOSIS
     Dosage: 50 MG, 1X/DAY, WHEN HE GOES TO BED
     Route: 048
     Dates: start: 20150723, end: 20150729
  2. AMILORIDE [Concomitant]
     Active Substance: AMILORIDE
     Indication: BLOOD PRESSURE ABNORMAL
     Dosage: 10 MG, 2X/DAY, IN THE MORNING AND WITH DINNER
     Route: 048
  3. HYDRALAZINE [Concomitant]
     Active Substance: HYDRALAZINE HYDROCHLORIDE
     Dosage: 50 MG, 2X/DAY, ONE IN THE MORNING AND ONE AT NIGHT
     Route: 048
  4. BUMETANIDE. [Concomitant]
     Active Substance: BUMETANIDE
     Indication: BLOOD TRIGLYCERIDES ABNORMAL
     Dosage: 0.5 MG, 1X/DAY, AT LUNCHTIME
     Route: 048
  5. BYSTOLIC [Concomitant]
     Active Substance: NEBIVOLOL HYDROCHLORIDE
     Indication: BLOOD PRESSURE ABNORMAL
     Dosage: 10 MG, 1X/DAY, IN THE MORNING
     Route: 048
  6. CLONIDINE. [Concomitant]
     Active Substance: CLONIDINE
     Indication: BLOOD PRESSURE ABNORMAL
     Dosage: 0.3 MG, 4X/DAY
     Route: 048
  7. LORAZEPAM. [Concomitant]
     Active Substance: LORAZEPAM
     Indication: SLEEP DISORDER
  8. LYRICA [Suspect]
     Active Substance: PREGABALIN
     Indication: NERVE INJURY
     Dosage: 75 MG, 1X/DAY, AT BEDTIME
     Route: 048
     Dates: start: 20150730
  9. VITAMIN D3 [Concomitant]
     Active Substance: CHOLECALCIFEROL
     Indication: VITAMIN D DEFICIENCY
     Dosage: 2000 IU, 2X/DAY, AT LUNCHTIME AND AT NIGHT
     Route: 048
  10. VITAMIN B3 [Concomitant]
     Active Substance: NIACIN
     Dosage: 2000 IU, 1X/DAY, EVERY MORNING
     Route: 048
  11. AZOR [Concomitant]
     Active Substance: AMLODIPINE BESYLATE\OLMESARTAN MEDOXOMIL
     Dosage: 10MG/40MG, IN THE MORNING, DAILY
     Route: 048
  12. VITAMIN C [Concomitant]
     Active Substance: ASCORBIC ACID
     Dosage: 3000 MG, DAILY, 1000MG AT LUNCHTIME, 2000MG WHEN HE GOES TO BED
  13. FISH OIL [Concomitant]
     Active Substance: FISH OIL
     Indication: BLOOD CHOLESTEROL ABNORMAL
     Dosage: 2400 MG, 2X/DAY, AT LUNCH AND AT DINNER
     Route: 048
  14. FLOMAX [Concomitant]
     Active Substance: TAMSULOSIN HYDROCHLORIDE
     Indication: POLLAKIURIA
     Dosage: 0.4 MG, 2X/DAY, AT LUNCH AND AT DINNER
     Route: 048
  15. CENTRUM SILVER ADULTS 50+ [Concomitant]
     Active Substance: VITAMINS
     Dosage: 1 DF, 1X/DAY, IN THE MORNING
     Route: 048
  16. LORAZEPAM. [Concomitant]
     Active Substance: LORAZEPAM
     Indication: ANXIETY
     Dosage: 1 MG, 1X/DAY, AT BEDTIME
     Route: 048

REACTIONS (3)
  - Pain [Not Recovered/Not Resolved]
  - Myalgia [Unknown]
  - Condition aggravated [Unknown]
